FAERS Safety Report 17855736 (Version 1)
Quarter: 2020Q2

REPORT INFORMATION
  Report Type: Spontaneous
  Country: DE (occurrence: DE)
  Receive Date: 20200603
  Receipt Date: 20200603
  Transmission Date: 20200714
  Serious: Yes (Hospitalization, Other)
  Sender: FDA-Public Use
  Company Number: DE-MYLANLABS-2020M1053434

PATIENT
  Age: 66 Year
  Sex: Male

DRUGS (3)
  1. PRASUGREL. [Suspect]
     Active Substance: PRASUGREL
     Indication: THROMBOSIS PROPHYLAXIS
     Dosage: 10 MG, QD
     Route: 048
  2. PRASUGREL. [Suspect]
     Active Substance: PRASUGREL
     Dosage: 10 MG, BID
     Route: 048
  3. HEPARIN [Concomitant]
     Active Substance: HEPARIN SODIUM
     Indication: THROMBOSIS PROPHYLAXIS
     Dosage: 3000 IU
     Route: 042

REACTIONS (1)
  - Brain stem infarction [Unknown]
